FAERS Safety Report 21647881 (Version 2)
Quarter: 2022Q4

REPORT INFORMATION
  Report Type: Report from Study
  Country: NZ (occurrence: NZ)
  Receive Date: 20221128
  Receipt Date: 20221207
  Transmission Date: 20230113
  Serious: Yes (Other)
  Sender: FDA-Public Use
  Company Number: NZ-JNJFOC-20221145914

PATIENT
  Age: 27 Year
  Sex: Female
  Weight: 79 kg

DRUGS (1)
  1. REMICADE [Suspect]
     Active Substance: INFLIXIMAB
     Indication: Crohn^s disease
     Dosage: FIRST DOSE GIVEN 25/9/20 SECOND DOSE 12/10/20, THIRD DOSE 9/11/20.
     Route: 041
     Dates: start: 20200925

REACTIONS (1)
  - Psoriasis [Recovered/Resolved]
